FAERS Safety Report 6575424-7 (Version None)
Quarter: 2010Q1

REPORT INFORMATION
  Report Type: 
  Country: None (occurrence: None)
  Receive Date: 20100209
  Receipt Date: 20100201
  Transmission Date: 20100710
  Serious: Yes (Hospitalization, Other)
  Sender: FDA-Public Use
  Company Number: US-JNJFOC-20091202216

PATIENT
  Sex: Female
  Weight: 49.9 kg

DRUGS (14)
  1. SANDOZ FENTANYL TRANSDERMAL SYSTEM [Suspect]
     Indication: BACK PAIN
     Route: 062
  2. DURAGESIC-100 [Suspect]
     Indication: DRUG USE FOR UNKNOWN INDICATION
     Route: 062
  3. TYLENOL-500 [Concomitant]
     Route: 065
  4. EVISTA [Concomitant]
     Route: 065
  5. AMBIEN [Concomitant]
     Route: 065
  6. PATANOL [Concomitant]
     Route: 065
  7. COLACE [Concomitant]
     Route: 065
  8. OMEPRAZOLE [Concomitant]
     Route: 065
  9. LASIX [Concomitant]
     Route: 065
  10. PLAQUENIL [Concomitant]
     Route: 065
  11. SEROQUEL [Concomitant]
     Dosage: 1 AND 1/2 TABLETS
     Route: 065
  12. OXYCODONE HCL [Concomitant]
     Route: 065
  13. MULTIPLE OTHER MEDICATIONS [Concomitant]
     Route: 065
  14. ALEVE (CAPLET) [Concomitant]
     Route: 065

REACTIONS (7)
  - ACCIDENTAL OVERDOSE [None]
  - ALTERED STATE OF CONSCIOUSNESS [None]
  - BACK PAIN [None]
  - CONFUSIONAL STATE [None]
  - SEDATION [None]
  - TREATMENT NONCOMPLIANCE [None]
  - URINARY TRACT INFECTION [None]
